FAERS Safety Report 18165134 (Version 1)
Quarter: 2020Q3

REPORT INFORMATION
  Report Type: Spontaneous
  Country: CA (occurrence: CA)
  Receive Date: 20200819
  Receipt Date: 20200819
  Transmission Date: 20201103
  Serious: Yes (Other)
  Sender: FDA-Public Use
  Company Number: CA-TEVA-2020-CA-1815991

PATIENT
  Age: 6 Year
  Sex: Female

DRUGS (7)
  1. FOSCARNET SODIUM. [Concomitant]
     Active Substance: FOSCARNET SODIUM
  2. MYCOPHENOLATE MOFETIL. [Suspect]
     Active Substance: MYCOPHENOLATE MOFETIL
     Indication: IMMUNOSUPPRESSION
     Route: 065
  3. CYTOGAM [Suspect]
     Active Substance: HUMAN CYTOMEGALOVIRUS IMMUNE GLOBULIN
     Indication: CYTOMEGALOVIRUS INFECTION
     Dosage: 2 DOSAGE FORMS DAILY;
     Route: 065
  4. GANCICLOVIR. [Suspect]
     Active Substance: GANCICLOVIR
     Indication: IMMUNOSUPPRESSION
     Dosage: 20 MG/KG DAILY;
     Route: 042
  5. TACROLIMUS. [Suspect]
     Active Substance: TACROLIMUS
     Indication: IMMUNOSUPPRESSION
     Route: 048
  6. GANCICLOVIR. [Suspect]
     Active Substance: GANCICLOVIR
     Dosage: 15 MILLIGRAM DAILY;
     Route: 042
  7. PREDNISONE. [Suspect]
     Active Substance: PREDNISONE
     Indication: IMMUNOSUPPRESSION
     Route: 065

REACTIONS (4)
  - Cytomegalovirus infection [Unknown]
  - Gastroenteritis [Unknown]
  - Product use issue [Unknown]
  - Drug resistance [Unknown]
